FAERS Safety Report 5425371-9 (Version None)
Quarter: 2007Q3

REPORT INFORMATION
  Report Type: 
  Country: None (occurrence: None)
  Receive Date: 20070731
  Receipt Date: 20070402
  Transmission Date: 20080115
  Serious: No
  Sender: FDA-Public Use
  Company Number: US200704000993

PATIENT
  Age: 63 Year
  Sex: Female
  Weight: 74.8 kg

DRUGS (4)
  1. BYETTA(EXENATIDE) PEN,DISPOSABLE [Suspect]
     Indication: TYPE 2 DIABETES MELLITUS
     Dosage: 5 UG, 2/D, SUBCUTANEOUS
     Route: 058
     Dates: start: 20070301, end: 20070301
  2. BYETTA(EXENATIDE) PEN,DISPOSABLE [Suspect]
     Indication: TYPE 2 DIABETES MELLITUS
     Dosage: 5 UG, 2/D, SUBCUTANEOUS
     Route: 058
     Dates: start: 20070327
  3. METFORMIN HCL [Concomitant]
  4. DIOVAN HCT [Concomitant]

REACTIONS (8)
  - BLOOD GLUCOSE FLUCTUATION [None]
  - DIARRHOEA [None]
  - DISTURBANCE IN ATTENTION [None]
  - FEELING JITTERY [None]
  - MALAISE [None]
  - MIGRAINE [None]
  - NAUSEA [None]
  - VOMITING [None]
